FAERS Safety Report 6003056-8 (Version None)
Quarter: 2008Q4

REPORT INFORMATION
  Report Type: 
  Country: None (occurrence: None)
  Receive Date: 20081215
  Receipt Date: 20081203
  Transmission Date: 20090506
  Serious: Yes (Other)
  Sender: FDA-Public Use
  Company Number: IE-PFIZER INC-2008153153

PATIENT

DRUGS (2)
  1. CHAMPIX [Suspect]
     Indication: SMOKING CESSATION THERAPY
     Dosage: 0.5MG
     Route: 048
     Dates: start: 20080827, end: 20080830
  2. LAMISIL [Concomitant]
     Dosage: 250 MG UNIT DOSE

REACTIONS (1)
  - AFFECTIVE DISORDER [None]
